FAERS Safety Report 25571070 (Version 1)
Quarter: 2025Q3

REPORT INFORMATION
  Report Type: Report from Study
  Country: US (occurrence: US)
  Receive Date: 20250717
  Receipt Date: 20250717
  Transmission Date: 20251021
  Serious: No
  Sender: ACADIA PHARMACEUTICALS
  Company Number: US-ACADIA PHARMACEUTICALS INC.-ACA-2025-PIM-008297

PATIENT
  Age: 71 Year
  Sex: Male

DRUGS (12)
  1. NUPLAZID [Suspect]
     Active Substance: PIMAVANSERIN TARTRATE
     Indication: Parkinson^s disease psychosis
     Dosage: 34 MILLIGRAM, QD
     Route: 048
     Dates: start: 20250501, end: 20250703
  2. CLINDAMYCIN [Concomitant]
     Active Substance: CLINDAMYCIN
  3. BACITRACIN [Concomitant]
     Active Substance: BACITRACIN
  4. PREDNISONE [Concomitant]
     Active Substance: PREDNISONE
  5. NEUPRO [Concomitant]
     Active Substance: ROTIGOTINE
  6. RASAGILINE [Concomitant]
     Active Substance: RASAGILINE
  7. AMOXICILLIN\CLAVULANATE POTASSIUM [Concomitant]
     Active Substance: AMOXICILLIN\CLAVULANATE POTASSIUM
  8. CARBIDOPA\LEVODOPA [Concomitant]
     Active Substance: CARBIDOPA\LEVODOPA
  9. MINERALS\VITAMINS [Concomitant]
     Active Substance: MINERALS\VITAMINS
  10. OMEGA-3 FATTY ACIDS [Concomitant]
     Active Substance: OMEGA-3 FATTY ACIDS
  11. BIFIDOBACTERIUM SPP.\LACTOBACILLUS ACIDOPHILUS [Concomitant]
     Active Substance: BIFIDOBACTERIUM SPP.\LACTOBACILLUS ACIDOPHILUS
  12. VITAMIN K2 + D3 [COLECALCIFEROL;MENAQUINONE-7] [Concomitant]

REACTIONS (1)
  - Drug ineffective [Not Recovered/Not Resolved]

NARRATIVE: CASE EVENT DATE: 20250501
